FAERS Safety Report 15010563 (Version 5)
Quarter: 2019Q1

REPORT INFORMATION
  Report Type: Spontaneous
  Country: US (occurrence: US)
  Receive Date: 20180614
  Receipt Date: 20190314
  Transmission Date: 20190417
  Serious: No
  Sender: FDA-Public Use
  Company Number: US-PFIZER INC-2018239077

PATIENT
  Age: 67 Year
  Sex: Female

DRUGS (16)
  1. TAXOTERE [Suspect]
     Active Substance: DOCETAXEL
     Indication: INVASIVE BREAST CARCINOMA
     Dosage: 75MG/M2/DOSE/X 1.96M2, CYCLIC (EVERY THREE WEEKS, 04 CYCLES)
     Dates: start: 20120305, end: 20120507
  2. DOCETAXEL SANOFI AVENTIS [Suspect]
     Active Substance: DOCETAXEL
     Indication: INVASIVE BREAST CARCINOMA
     Dosage: 75MG/M2/DOSE/X 1.96M2, CYCLIC (EVERY THREE WEEKS, 04 CYCLES)
     Dates: start: 20120305, end: 20120507
  3. DOCETAXEL. [Suspect]
     Active Substance: DOCETAXEL
     Indication: INVASIVE BREAST CARCINOMA
     Dosage: 75MG/M2/DOSE/X 1.96M2, CYCLIC (EVERY THREE WEEKS, 04 CYCLES)
     Dates: start: 20120305, end: 20120507
  4. DOCEFREZ [Suspect]
     Active Substance: DOCETAXEL ANHYDROUS
     Indication: INVASIVE BREAST CARCINOMA
     Dosage: 75MG/M2/DOSE/X 1.96M2, CYCLIC (EVERY THREE WEEKS, 04 CYCLES)
     Dates: start: 20120305, end: 20120507
  5. DOCETAXEL SANDOZ [Suspect]
     Active Substance: DOCETAXEL
     Indication: INVASIVE BREAST CARCINOMA
     Dosage: 75MG/M2/DOSE/X 1.96M2, CYCLIC (EVERY THREE WEEKS, 04 CYCLES)
     Dates: start: 20120305, end: 20120507
  6. VITAMIN D3 [Concomitant]
     Active Substance: CHOLECALCIFEROL
     Dosage: UNK
     Dates: start: 2006
  7. CALCIUM [Concomitant]
     Active Substance: CALCIUM
     Dosage: UNK
     Dates: start: 2006
  8. LORAZEPAM. [Concomitant]
     Active Substance: LORAZEPAM
     Dosage: UNK
  9. DOCETAXEL ACCORD [Suspect]
     Active Substance: DOCETAXEL
     Indication: INVASIVE BREAST CARCINOMA
     Dosage: 75MG/M2/DOSE/X 1.96M2, CYCLIC (EVERY THREE WEEKS, 04 CYCLES)
     Dates: start: 20120305, end: 20120507
  10. NEOSAR [Concomitant]
     Active Substance: CYCLOPHOSPHAMIDE
     Indication: CHEMOTHERAPY
     Dosage: 600 MG/M2/DOSE
  11. LISINOPRIL. [Concomitant]
     Active Substance: LISINOPRIL
     Dosage: UNK
     Dates: start: 2006
  12. OMEPRAZOLE. [Concomitant]
     Active Substance: OMEPRAZOLE
     Dosage: UNK
     Dates: start: 2006
  13. BABY ASPIRIN [Concomitant]
     Active Substance: ASPIRIN
     Dosage: UNK
     Dates: start: 2006
  14. ANASTROZOLE. [Concomitant]
     Active Substance: ANASTROZOLE
     Dosage: UNK
     Dates: start: 2012
  15. NORTRIPTYLIN [Concomitant]
     Active Substance: NORTRIPTYLINE
     Dosage: UNK
     Dates: start: 2012
  16. VITAMIN B12 [Concomitant]
     Active Substance: CYANOCOBALAMIN
     Dosage: UNK
     Dates: start: 2006

REACTIONS (5)
  - Hair colour changes [Not Recovered/Not Resolved]
  - Alopecia [Not Recovered/Not Resolved]
  - Hair disorder [Not Recovered/Not Resolved]
  - Hair texture abnormal [Not Recovered/Not Resolved]
  - Madarosis [Not Recovered/Not Resolved]

NARRATIVE: CASE EVENT DATE: 201203
